FAERS Safety Report 23756832 (Version 3)
Quarter: 2024Q3

REPORT INFORMATION
  Report Type: Spontaneous
  Country: ES (occurrence: ES)
  Receive Date: 20240418
  Receipt Date: 20240909
  Transmission Date: 20241017
  Serious: Yes (Hospitalization)
  Sender: FRESENIUS KABI
  Company Number: ES-GILEAD-2024-0668376

PATIENT
  Sex: Male
  Weight: 81.6 kg

DRUGS (16)
  1. PEMETREXED [Suspect]
     Active Substance: PEMETREXED
     Indication: Non-small cell lung cancer metastatic
     Dosage: 1000 MG?DOSAGE FORM: INJECTION?ROA: INTRAVENOUS
     Dates: start: 20240318, end: 20240318
  2. PEMETREXED [Suspect]
     Active Substance: PEMETREXED
     Dosage: 1000 MG
     Dates: start: 20230818, end: 20230818
  3. CARBOPLATIN [Suspect]
     Active Substance: CARBOPLATIN
     Indication: Non-small cell lung cancer metastatic
     Dosage: 720 MG?FORM OF ADMIN-INJECTION
     Route: 042
     Dates: start: 20230818, end: 20230818
  4. ZIMBERELIMAB [Suspect]
     Active Substance: ZIMBERELIMAB
     Indication: Non-small cell lung cancer metastatic
     Dosage: 360 MG?DOSAGE FORM: SOLUTION FOR INFUSION?ROA: INTRAVENOUS
     Dates: start: 20240318, end: 20240318
  5. ZIMBERELIMAB [Suspect]
     Active Substance: ZIMBERELIMAB
     Dosage: 360 MG
     Dates: start: 20230818, end: 20230818
  6. DOMVANALIMAB [Suspect]
     Active Substance: DOMVANALIMAB
     Indication: Non-small cell lung cancer metastatic
     Dosage: 1200 MG?DOSAGE FORM: SOLUTION FOR INFUSION?ROA: INTRAVENOUS
     Dates: start: 20240318, end: 20240318
  7. DOMVANALIMAB [Suspect]
     Active Substance: DOMVANALIMAB
     Dosage: 1200 MG
     Dates: start: 20230818, end: 20230818
  8. FUROSEMIDE [Concomitant]
     Active Substance: FUROSEMIDE
     Indication: Oedema peripheral
     Dates: start: 20240318, end: 20240319
  9. FOLIC ACID [Concomitant]
     Active Substance: FOLIC ACID
     Dosage: ROA: ORAL
     Dates: start: 20230814
  10. FOLIC ACID [Concomitant]
     Active Substance: FOLIC ACID
     Indication: Product used for unknown indication
  11. VITAMIN B12 [Concomitant]
     Active Substance: CYANOCOBALAMIN
     Dosage: ROA: INTRAMUSCULAR USE
     Dates: start: 20230821
  12. VITAMIN B12 [Concomitant]
     Active Substance: CYANOCOBALAMIN
     Indication: Product used for unknown indication
  13. DEXAMETHASONE [Concomitant]
     Active Substance: DEXAMETHASONE
     Indication: Premedication
     Dosage: ROA: INTRAMUSCULAR USE
     Dates: start: 20240318, end: 20240318
  14. NICOTINE [Concomitant]
     Active Substance: NICOTINE
     Indication: Product used for unknown indication
     Dosage: ROA: CUTANEOUS USE
     Dates: start: 20230907
  15. PREDNISONE [Concomitant]
     Active Substance: PREDNISONE
     Indication: Premedication
     Dosage: ROA: ORAL USE
  16. CALCIUM CARBONATE\CHOLECALCIFEROL [Concomitant]
     Active Substance: CALCIUM CARBONATE\CHOLECALCIFEROL
     Indication: Prophylaxis
     Dosage: ROA: ORAL USE
     Dates: start: 202308

REACTIONS (1)
  - Cellulite [Recovered/Resolved]

NARRATIVE: CASE EVENT DATE: 20240404
